FAERS Safety Report 8508342-5 (Version None)
Quarter: 2012Q3

REPORT INFORMATION
  Report Type: 
  Country: None (occurrence: None)
  Receive Date: 20120713
  Receipt Date: 20120704
  Transmission Date: 20120928
  Serious: Yes (Other)
  Sender: FDA-Public Use
  Company Number: CA-JNJFOC-20120702510

PATIENT
  Sex: Female
  Weight: 117 kg

DRUGS (3)
  1. ANTIDEPRESSANT [Concomitant]
     Route: 065
  2. REMICADE [Suspect]
     Indication: CROHN'S DISEASE
     Route: 042
     Dates: start: 20070605
  3. BIRTH CONTROL PILL [Concomitant]
     Route: 065

REACTIONS (4)
  - PRODUCTIVE COUGH [None]
  - MALAISE [None]
  - WHEEZING [None]
  - FATIGUE [None]
